FAERS Safety Report 5266098-6 (Version None)
Quarter: 2007Q1

REPORT INFORMATION
  Report Type: 
  Country: None (occurrence: None)
  Receive Date: 20070315
  Receipt Date: 20070306
  Transmission Date: 20070707
  Serious: Yes (Hospitalization)
  Sender: FDA-Public Use
  Company Number: 2007AP01408

PATIENT
  Age: 26 Year
  Sex: Male

DRUGS (3)
  1. OMEPRAL [Suspect]
     Route: 048
  2. PRIMPERAN INJ [Concomitant]
     Route: 048
  3. MUCOSTA [Concomitant]
     Route: 048

REACTIONS (1)
  - DEPRESSED LEVEL OF CONSCIOUSNESS [None]
